FAERS Safety Report 13775632 (Version 1)
Quarter: 2017Q3

REPORT INFORMATION
  Report Type: Spontaneous
  Country: US (occurrence: US)
  Receive Date: 20170720
  Receipt Date: 20170720
  Transmission Date: 20171127
  Serious: No
  Sender: FDA-Public Use
  Company Number: US-BAUSCH-BL-2017-005048

PATIENT
  Age: 73 Year
  Sex: Female

DRUGS (2)
  1. ILEVRO [Concomitant]
     Active Substance: NEPAFENAC
     Indication: CATARACT OPERATION
     Dosage: 1 DROP RIGHT EYE
     Route: 047
     Dates: start: 20170218
  2. BESIVANCE [Suspect]
     Active Substance: BESIFLOXACIN
     Indication: PREOPERATIVE CARE
     Dosage: 1 DROP THREE A DAY START 3 DAYS BEFORE SURGERY AND CONTINUE FOR 7 DAYS.
     Route: 047
     Dates: start: 20170218

REACTIONS (3)
  - Abdominal pain upper [Not Recovered/Not Resolved]
  - Diarrhoea [Not Recovered/Not Resolved]
  - Headache [Not Recovered/Not Resolved]

NARRATIVE: CASE EVENT DATE: 20170220
